FAERS Safety Report 4777065-0 (Version None)
Quarter: 2005Q3

REPORT INFORMATION
  Report Type: 
  Country: None (occurrence: None)
  Receive Date: 20050915
  Receipt Date: 20050824
  Transmission Date: 20060218
  Serious: Yes (Hospitalization)
  Sender: FDA-Public Use
  Company Number: JP_050807287

PATIENT
  Age: 56 Year
  Sex: Female
  Weight: 56 kg

DRUGS (1)
  1. EVISTA [Suspect]
     Indication: OSTEOPOROSIS
     Dosage: 60 MG/1 DAY
     Dates: start: 20050418, end: 20050614

REACTIONS (5)
  - ALANINE AMINOTRANSFERASE INCREASED [None]
  - ASPARTATE AMINOTRANSFERASE INCREASED [None]
  - BLOOD CHOLINESTERASE ABNORMAL [None]
  - BLOOD LACTATE DEHYDROGENASE INCREASED [None]
  - HEPATIC FUNCTION ABNORMAL [None]
